FAERS Safety Report 22785589 (Version 2)
Quarter: 2024Q3

REPORT INFORMATION
  Report Type: Spontaneous
  Country: US (occurrence: US)
  Receive Date: 20230804
  Receipt Date: 20240808
  Transmission Date: 20241017
  Serious: No
  Sender: OTSUKA
  Company Number: US-OTSUKA-2023_019134

PATIENT

DRUGS (1)
  1. ABILIFY MAINTENA [Suspect]
     Active Substance: ARIPIPRAZOLE
     Indication: Product used for unknown indication
     Dosage: 1056 MG EVERY 6 WEEKS
     Route: 030

REACTIONS (3)
  - Incorrect dose administered by device [Unknown]
  - Overdose [Unknown]
  - Inappropriate schedule of product administration [Unknown]
